FAERS Safety Report 16361070 (Version 1)
Quarter: 2019Q2

REPORT INFORMATION
  Report Type: Spontaneous
  Country: IT (occurrence: IT)
  Receive Date: 20190528
  Receipt Date: 20190528
  Transmission Date: 20190711
  Serious: Yes (Other)
  Sender: FDA-Public Use
  Company Number: IT-SA-2019SA144270

PATIENT
  Age: 55 Year
  Sex: Female

DRUGS (1)
  1. ZARIVIZ [Suspect]
     Active Substance: CEFOTAXIME SODIUM
     Indication: BRONCHITIS
     Dosage: 1 G, QD
     Route: 030

REACTIONS (3)
  - Swelling [Recovered/Resolved]
  - Choking [Recovered/Resolved]
  - Flushing [Recovered/Resolved]

NARRATIVE: CASE EVENT DATE: 20190108
